FAERS Safety Report 24317012 (Version 1)
Quarter: 2024Q3

REPORT INFORMATION
  Report Type: Spontaneous
  Country: US (occurrence: None)
  Receive Date: 20240912
  Receipt Date: 20240912
  Transmission Date: 20241017
  Serious: Yes (Congenital Anomaly)
  Sender: Public
  Company Number: None

PATIENT
  Age: 44 Year
  Sex: Female

DRUGS (1)
  1. TREMFYA [Suspect]
     Active Substance: GUSELKUMAB
     Indication: Psoriasis
     Dates: start: 20230418, end: 20240803

REACTIONS (4)
  - Abortion spontaneous [None]
  - Exposure during pregnancy [None]
  - Maternal drugs affecting foetus [None]
  - Therapy cessation [None]

NARRATIVE: CASE EVENT DATE: 20240803
